FAERS Safety Report 4686511-2 (Version None)
Quarter: 2005Q2

REPORT INFORMATION
  Report Type: 
  Country: None (occurrence: None)
  Receive Date: 20050607
  Receipt Date: 20050523
  Transmission Date: 20051028
  Serious: Yes (Other)
  Sender: FDA-Public Use
  Company Number: 2005078265

PATIENT
  Sex: Male
  Weight: 87.5442 kg

DRUGS (10)
  1. CELEBREX [Suspect]
     Indication: ARTHROPATHY
  2. AMIODARONE (AMIODARONE) [Concomitant]
  3. SYNTHROID [Concomitant]
  4. DETROL [Concomitant]
  5. FOSINOPRIL SODIUM [Concomitant]
  6. LIPITOR [Concomitant]
  7. RANITIDINE HYDROCHLORIDE [Concomitant]
  8. ACETYLSALICYLIC ACID SRT [Concomitant]
  9. MULTIVITAMIN [Concomitant]
  10. CHONDROITIN/GLUCOSAMINE (CHONDROITIN, GLUCOSAMINE) [Concomitant]

REACTIONS (1)
  - ARTHROPATHY [None]
